FAERS Safety Report 18773524 (Version 2)
Quarter: 2021Q1

REPORT INFORMATION
  Report Type: Spontaneous
  Country: US (occurrence: US)
  Receive Date: 20210122
  Receipt Date: 20210319
  Transmission Date: 20210419
  Serious: Yes (Other)
  Sender: FDA-Public Use
  Company Number: US-GLAXOSMITHKLINE-US2021GSK014479

PATIENT
  Sex: Male

DRUGS (6)
  1. ZANTAC [Suspect]
     Active Substance: RANITIDINE HYDROCHLORIDE
     Indication: NAUSEA
     Dosage: UNK UNK, QD
     Route: 065
     Dates: start: 198901, end: 201912
  2. RANITIDINE. [Suspect]
     Active Substance: RANITIDINE
     Indication: NAUSEA
     Dosage: UNK, QD
     Route: 065
     Dates: start: 198901, end: 201912
  3. RANITIDINE. [Suspect]
     Active Substance: RANITIDINE
     Indication: NAUSEA
     Dosage: UNK UNK, QD
     Route: 065
     Dates: start: 198901, end: 201912
  4. ZANTAC [Suspect]
     Active Substance: RANITIDINE HYDROCHLORIDE
     Indication: NAUSEA
     Dosage: UNK UNK, QD
     Route: 065
     Dates: start: 198901, end: 201912
  5. ZANTAC [Suspect]
     Active Substance: RANITIDINE HYDROCHLORIDE
     Indication: NAUSEA
     Dosage: UNK UNK, QD
     Route: 065
     Dates: start: 198901, end: 201912
  6. RANITIDINE. [Suspect]
     Active Substance: RANITIDINE
     Indication: NAUSEA
     Dosage: UNK UNK, QD
     Route: 065
     Dates: start: 198901, end: 201912

REACTIONS (2)
  - Oesophageal carcinoma [Unknown]
  - Bladder cancer [Unknown]
